FAERS Safety Report 19896007 (Version 1)
Quarter: 2021Q3

REPORT INFORMATION
  Report Type: Spontaneous
  Country: ES (occurrence: ES)
  Receive Date: 20210929
  Receipt Date: 20210929
  Transmission Date: 20211014
  Serious: Yes (Hospitalization, Other)
  Sender: FDA-Public Use
  Company Number: ES-MYLANLABS-2021M1066011

PATIENT
  Age: 63 Year
  Sex: Male

DRUGS (2)
  1. FUROSEMIDE. [Suspect]
     Active Substance: FUROSEMIDE
     Indication: CIRRHOSIS ALCOHOLIC
     Dosage: 80 MILLIGRAM, QD (80MG/24H)
     Route: 048
     Dates: start: 20191227
  2. ESPIRONOLACTONA [Interacting]
     Active Substance: SPIRONOLACTONE
     Indication: PORTAL HYPERTENSION
     Dosage: 300 MILLIGRAM, QD (200?100?0)
     Route: 048
     Dates: start: 20191227

REACTIONS (2)
  - Drug interaction [Unknown]
  - Hyponatraemia [Recovered/Resolved]

NARRATIVE: CASE EVENT DATE: 20200125
